FAERS Safety Report 23604529 (Version 1)
Quarter: 2024Q1

REPORT INFORMATION
  Report Type: Other
  Country: JP (occurrence: JP)
  Receive Date: 20240307
  Receipt Date: 20240307
  Transmission Date: 20240410
  Serious: Yes (Other)
  Sender: FDA-Public Use
  Company Number: JP-ROCHE-3520463

PATIENT
  Age: 76 Year
  Sex: Male
  Weight: 57 kg

DRUGS (13)
  1. CAPECITABINE [Suspect]
     Active Substance: CAPECITABINE
     Indication: Rectal cancer stage IV
     Dosage: 300/(BMAB-CAPOX)
     Route: 065
  2. BEVACIZUMAB [Suspect]
     Active Substance: BEVACIZUMAB
     Indication: Rectal cancer stage IV
     Route: 065
  3. OXALIPLATIN [Suspect]
     Active Substance: OXALIPLATIN
     Indication: Rectal cancer stage IV
     Route: 065
  4. OXALIPLATIN [Suspect]
     Active Substance: OXALIPLATIN
     Dosage: 85 MILLIGRAM/SQ. METER
     Route: 065
  5. FLUOROURACIL [Suspect]
     Active Substance: FLUOROURACIL
     Indication: Rectal cancer stage IV
     Route: 040
  6. FLUOROURACIL [Suspect]
     Active Substance: FLUOROURACIL
     Route: 065
  7. LEVOLEUCOVORIN CALCIUM [Suspect]
     Active Substance: LEVOLEUCOVORIN CALCIUM
     Indication: Rectal cancer stage IV
     Route: 065
  8. GRANISETRON HYDROCHLORIDE [Concomitant]
     Active Substance: GRANISETRON HYDROCHLORIDE
  9. DEXAMETHASONE SODIUM PHOSPHATE [Concomitant]
     Active Substance: DEXAMETHASONE PHOSPHATE\DEXAMETHASONE SODIUM PHOSPHATE
     Route: 065
  10. DEXAMETHASONE SODIUM PHOSPHATE [Concomitant]
     Active Substance: DEXAMETHASONE PHOSPHATE\DEXAMETHASONE SODIUM PHOSPHATE
     Route: 065
  11. NIFEDIPINE [Concomitant]
     Active Substance: NIFEDIPINE
     Route: 065
  12. CLOPIDOGREL BISULFATE [Concomitant]
     Active Substance: CLOPIDOGREL BISULFATE
  13. LINAGLIPTIN [Concomitant]
     Active Substance: LINAGLIPTIN

REACTIONS (3)
  - Hepatitis B reactivation [Recovering/Resolving]
  - Renal impairment [Unknown]
  - Thrombosis [Unknown]
